FAERS Safety Report 9338293 (Version 1)
Quarter: 2013Q2

REPORT INFORMATION
  Report Type: Spontaneous
  Country: US (occurrence: None)
  Receive Date: 20130605
  Receipt Date: 20130605
  Transmission Date: 20140414
  Serious: Yes (Life-Threatening, Hospitalization)
  Sender: FDA-Public Use
  Company Number: None

PATIENT
  Age: 79 None
  Sex: Male
  Weight: 65.9 kg

DRUGS (1)
  1. WARFARIN [Suspect]
     Indication: ATRIAL FIBRILLATION
     Route: 048
     Dates: start: 20120731, end: 20130409

REACTIONS (13)
  - International normalised ratio increased [None]
  - Alcohol use [None]
  - Drug interaction [None]
  - Asthenia [None]
  - Food poisoning [None]
  - Haematemesis [None]
  - Melaena [None]
  - Haemoglobin decreased [None]
  - Gastritis [None]
  - Diverticulum intestinal [None]
  - Gastritis erosive [None]
  - Injury associated with device [None]
  - Upper gastrointestinal haemorrhage [None]
